FAERS Safety Report 7310795-5 (Version None)
Quarter: 2011Q1

REPORT INFORMATION
  Report Type: 
  Country: None (occurrence: None)
  Receive Date: 20110224
  Receipt Date: 20110214
  Transmission Date: 20110831
  Serious: Yes (Hospitalization)
  Sender: FDA-Public Use
  Company Number: NL-MEDIMMUNE-MEDI-0012386

PATIENT
  Sex: Male
  Weight: 2.96 kg

DRUGS (2)
  1. SYNAGIS [Suspect]
     Route: 030
     Dates: start: 20110131
  2. SYNAGIS [Suspect]
     Route: 030
     Dates: start: 20101231, end: 20101231

REACTIONS (2)
  - COLON OPERATION [None]
  - ADVERSE EVENT [None]
